FAERS Safety Report 23032293 (Version 1)
Quarter: 2023Q4

REPORT INFORMATION
  Report Type: Spontaneous
  Country: US (occurrence: US)
  Receive Date: 20231005
  Receipt Date: 20231005
  Transmission Date: 20240110
  Serious: Yes (Hospitalization, Other)
  Sender: FDA-Public Use
  Company Number: US-SA-2023SA283514

PATIENT
  Age: 4 Year
  Sex: Female

DRUGS (3)
  1. LIDOCAINE [Suspect]
     Active Substance: LIDOCAINE
     Indication: Pain
     Dosage: UNK (BURN CREAM)
  2. LIDOCAINE [Suspect]
     Active Substance: LIDOCAINE
     Dosage: UNK (SPRAY)
  3. ALOE VERA LEAF [Concomitant]
     Active Substance: ALOE VERA LEAF
     Indication: Thermal burn

REACTIONS (4)
  - Generalised tonic-clonic seizure [Recovered/Resolved]
  - Lethargy [Recovered/Resolved]
  - Toxicity to various agents [Recovered/Resolved]
  - Apnoea [Unknown]
